FAERS Safety Report 19006044 (Version 2)
Quarter: 2021Q1

REPORT INFORMATION
  Report Type: Report from Study
  Country: None (occurrence: RO)
  Receive Date: 20210314
  Receipt Date: 20210324
  Transmission Date: 20210420
  Serious: Yes (Hospitalization, Disabling, Other)
  Sender: FDA-Public Use
  Company Number: RO-ABBVIE-21K-135-3811737-00

PATIENT
  Age: 60 Year
  Sex: Female

DRUGS (2)
  1. DUODOPA [Suspect]
     Active Substance: CARBIDOPA\LEVODOPA
  2. DUODOPA [Suspect]
     Active Substance: CARBIDOPA\LEVODOPA
     Indication: PARKINSON^S DISEASE
     Dosage: DM=4.50 DC=4.30 ED=1.80 NED=5; DM=0.00 DC=0.00 ED=0.00 NEDN=0
     Route: 050
     Dates: start: 20130718

REACTIONS (7)
  - Fall [Unknown]
  - Malnutrition [Recovering/Resolving]
  - Hypothermia [Recovering/Resolving]
  - Pneumonia [Recovering/Resolving]
  - Interstitial lung disease [Recovering/Resolving]
  - Hypothermia [Recovered/Resolved]
  - Gastritis erosive [Recovering/Resolving]

NARRATIVE: CASE EVENT DATE: 20210309
